FAERS Safety Report 12511956 (Version 3)
Quarter: 2016Q3

REPORT INFORMATION
  Report Type: Spontaneous
  Country: US (occurrence: US)
  Receive Date: 20160630
  Receipt Date: 20160824
  Transmission Date: 20161109
  Serious: Yes (Hospitalization)
  Sender: FDA-Public Use
  Company Number: US-JNJFOC-20160521187

PATIENT
  Sex: Male

DRUGS (1)
  1. XARELTO [Suspect]
     Active Substance: RIVAROXABAN
     Indication: MITRAL VALVE REPAIR
     Route: 048
     Dates: start: 20140417, end: 20140421

REACTIONS (2)
  - Post procedural haemorrhage [Unknown]
  - Cardiac tamponade [Unknown]
